FAERS Safety Report 14840054 (Version 2)
Quarter: 2018Q2

REPORT INFORMATION
  Report Type: Spontaneous
  Country: US (occurrence: US)
  Receive Date: 20180503
  Receipt Date: 20180524
  Transmission Date: 20180711
  Serious: No
  Sender: FDA-Public Use
  Company Number: US-UNITED THERAPEUTICS-UNT-2018-006080

PATIENT
  Sex: Male
  Weight: 117.91 kg

DRUGS (1)
  1. ORENITRAM [Suspect]
     Active Substance: TREPROSTINIL
     Indication: PULMONARY ARTERIAL HYPERTENSION
     Dosage: 2 MG, TID
     Route: 048
     Dates: start: 20170728

REACTIONS (6)
  - Dry mouth [Unknown]
  - Chest pain [Unknown]
  - Oxygen saturation abnormal [Unknown]
  - Anxiety [Unknown]
  - Secretion discharge [Unknown]
  - Decreased appetite [Unknown]
